FAERS Safety Report 24059523 (Version 1)
Quarter: 2024Q3

REPORT INFORMATION
  Report Type: Spontaneous
  Country: US (occurrence: US)
  Receive Date: 20240708
  Receipt Date: 20240708
  Transmission Date: 20241017
  Serious: Yes (Other)
  Sender: AUROBINDO
  Company Number: US-AUROBINDO-AUR-APL-2024-032924

PATIENT
  Age: 79 Year
  Sex: Female

DRUGS (3)
  1. AZITHROMYCIN [Suspect]
     Active Substance: AZITHROMYCIN
     Indication: Lyme disease
     Dosage: UNK
     Route: 065
  2. DOXYCYCLINE [Suspect]
     Active Substance: DOXYCYCLINE\DOXYCYCLINE HYCLATE
     Indication: Lyme disease
     Dosage: UNK
     Route: 065
  3. ATOVAQUONE [Suspect]
     Active Substance: ATOVAQUONE
     Indication: Lyme disease
     Dosage: UNK
     Route: 065

REACTIONS (1)
  - Drug ineffective [Unknown]
